FAERS Safety Report 7051846-5 (Version None)
Quarter: 2010Q4

REPORT INFORMATION
  Report Type: 
  Country: None (occurrence: None)
  Receive Date: 20101013
  Receipt Date: 20100927
  Transmission Date: 20110411
  Serious: Yes (Other)
  Sender: FDA-Public Use
  Company Number: 011215

PATIENT
  Age: 36 Year
  Sex: Female

DRUGS (3)
  1. BUSULFEX [Suspect]
     Indication: BONE MARROW CONDITIONING REGIMEN
     Dosage: 130 MG/M2, DAILY DOSE, INTRAVENOUS
     Route: 042
  2. MELPHALAN HYDROCHLORIDE [Concomitant]
  3. THIOTEPA [Concomitant]

REACTIONS (5)
  - BLOOD BILIRUBIN INCREASED [None]
  - GASTROINTESTINAL TOXICITY [None]
  - HEPATOTOXICITY [None]
  - MUCOSAL INFLAMMATION [None]
  - VENOOCCLUSIVE DISEASE [None]
